FAERS Safety Report 15879729 (Version 1)
Quarter: 2019Q1

REPORT INFORMATION
  Report Type: Report from Study
  Country: JP (occurrence: JP)
  Receive Date: 20190128
  Receipt Date: 20190128
  Transmission Date: 20190417
  Serious: Yes (Other)
  Sender: FDA-Public Use
  Company Number: JP-ROCHE-2251691

PATIENT

DRUGS (5)
  1. RITUXIMAB. [Suspect]
     Active Substance: RITUXIMAB
     Indication: CENTRAL NERVOUS SYSTEM LYMPHOMA
     Dosage: ON DAY 1? 3 CYCLES REPEATED FOR EVERY 3 WEEKS
     Route: 065
  2. RANIMUSTINE [Suspect]
     Active Substance: RANIMUSTINE
     Indication: CENTRAL NERVOUS SYSTEM LYMPHOMA
     Route: 065
  3. CYTARABINE. [Suspect]
     Active Substance: CYTARABINE
     Indication: CENTRAL NERVOUS SYSTEM LYMPHOMA
     Dosage: ON DAY 3 AND DAY 4?3 CYCLES REPEATED FOR EVERY 3 WEEKS
     Route: 065
  4. MITOXANTRONE HYDROCHLORIDE. [Suspect]
     Active Substance: MITOXANTRONE HYDROCHLORIDE
     Indication: CENTRAL NERVOUS SYSTEM LYMPHOMA
     Dosage: ON DAY 3 AND DAY 4 ?3 CYCLES REPEATED FOR EVERY 3 WEEKS
     Route: 065
  5. DEXAMETHASONE. [Suspect]
     Active Substance: DEXAMETHASONE
     Indication: CENTRAL NERVOUS SYSTEM LYMPHOMA
     Dosage: ON DAY 3 AND DAY 4 ?3 CYCLES REPEATED FOR EVERY 3 WEEKS
     Route: 065

REACTIONS (7)
  - Anaemia [Unknown]
  - Thrombocytopenia [Unknown]
  - Deep vein thrombosis [Unknown]
  - Leukopenia [Unknown]
  - Thrombosis [Unknown]
  - Hepatotoxicity [Unknown]
  - Hyponatraemia [Unknown]
